FAERS Safety Report 9915714 (Version 2)
Quarter: 2014Q2

REPORT INFORMATION
  Report Type: Spontaneous
  Country: US (occurrence: US)
  Receive Date: 20140221
  Receipt Date: 20140612
  Transmission Date: 20141212
  Serious: Yes (Disabling, Other)
  Sender: FDA-Public Use
  Company Number: US-CELGENEUS-163-21880-14021391

PATIENT
  Age: 70 Year
  Sex: Female

DRUGS (23)
  1. REVLIMID [Suspect]
     Indication: PLASMA CELL MYELOMA
     Dosage: 25 MILLIGRAM
     Route: 048
     Dates: start: 201004, end: 2010
  2. REVLIMID [Suspect]
     Dosage: 10-7.5MG
     Route: 048
     Dates: start: 201008
  3. REVLIMID [Suspect]
     Dosage: 5 MILLIGRAM
     Route: 048
     Dates: start: 20130917, end: 20140410
  4. MELPHALAN [Concomitant]
     Indication: PLASMA CELL MYELOMA
     Route: 065
     Dates: start: 201008
  5. PREDNISONE [Concomitant]
     Indication: PLASMA CELL MYELOMA
     Route: 065
     Dates: start: 201008
  6. ALBUTEROL [Concomitant]
     Indication: PRODUCT USED FOR UNKNOWN INDICATION
     Route: 055
     Dates: start: 20140305
  7. TYLENOL [Concomitant]
     Indication: PRODUCT USED FOR UNKNOWN INDICATION
     Dosage: 300 MILLIGRAM/MILLILITERS
     Route: 048
     Dates: start: 20140319
  8. LORAZEPAM [Concomitant]
     Indication: PRODUCT USED FOR UNKNOWN INDICATION
     Dosage: 2MG/ML-0.5MG
     Route: 048
     Dates: start: 20140326
  9. MIRTAZAPINE [Concomitant]
     Indication: DEPRESSION
     Route: 048
     Dates: start: 20140416
  10. OMEPRAZOLE [Concomitant]
     Indication: PRODUCT USED FOR UNKNOWN INDICATION
     Dosage: 40 MILLIGRAM
     Route: 048
     Dates: start: 20140530
  11. MILK OF MAGNESIA [Concomitant]
     Indication: PRODUCT USED FOR UNKNOWN INDICATION
     Dosage: 1 MILLILITER
     Route: 048
     Dates: start: 20140530
  12. NYSTATIN [Concomitant]
     Indication: MUCOSAL INFLAMMATION
     Dosage: 100,000 UNIT (1ML)
     Route: 048
     Dates: start: 20140530
  13. NYSTATIN [Concomitant]
     Indication: ODYNOPHAGIA
  14. ISOSOURCE HN [Concomitant]
     Indication: PRODUCT USED FOR UNKNOWN INDICATION
     Dosage: 4 MILLILITER
     Route: 048
     Dates: start: 20140530
  15. LOVENOX [Concomitant]
     Indication: PRODUCT USED FOR UNKNOWN INDICATION
     Dosage: 4 MILLILITER
     Route: 065
     Dates: start: 20140530
  16. TYLENOL ARTHRITIS [Concomitant]
     Indication: PRODUCT USED FOR UNKNOWN INDICATION
     Dosage: 1950 MILLIGRAM
     Route: 048
     Dates: start: 20140530
  17. IMODIUM [Concomitant]
     Indication: DIARRHOEA
     Route: 048
     Dates: start: 20140530
  18. METHADONE [Concomitant]
     Indication: ARTHRALGIA
     Dosage: 15 MILLIGRAM
     Route: 048
     Dates: start: 20140502
  19. GABAPENTIN [Concomitant]
     Indication: PRODUCT USED FOR UNKNOWN INDICATION
     Dosage: 1800 MILLIGRAM
     Route: 048
     Dates: start: 20140505
  20. ACYCLOVIR [Concomitant]
     Indication: PRODUCT USED FOR UNKNOWN INDICATION
     Dosage: 15 MILLILITER
     Route: 048
     Dates: start: 20140423
  21. SPIRIVA HANDIHALER [Concomitant]
     Indication: PRODUCT USED FOR UNKNOWN INDICATION
     Dosage: 18 MICROGRAM
     Route: 055
     Dates: start: 20140305
  22. FAMVIR [Concomitant]
     Indication: MUCOSAL INFLAMMATION
     Route: 065
  23. FAMVIR [Concomitant]
     Indication: ODYNOPHAGIA

REACTIONS (2)
  - Tonsil cancer [Unknown]
  - Dysphagia [Unknown]
